FAERS Safety Report 10164385 (Version 1)
Quarter: 2014Q2

REPORT INFORMATION
  Report Type: Spontaneous
  Country: US (occurrence: US)
  Receive Date: 20140510
  Receipt Date: 20140510
  Transmission Date: 20141212
  Serious: No
  Sender: FDA-Public Use
  Company Number: US-BRISTOL-MYERS SQUIBB COMPANY-20108304

PATIENT
  Age: 67 Year
  Sex: Male
  Weight: 113.38 kg

DRUGS (4)
  1. BYETTA PEN DISPOSABLE [Suspect]
     Indication: TYPE 2 DIABETES MELLITUS
  2. METFORMIN HCL [Suspect]
  3. GLYBURIDE [Suspect]
  4. LEVEMIR [Suspect]
     Dosage: 1DF:110UNITS

REACTIONS (3)
  - Blood glucose increased [Unknown]
  - Nausea [Unknown]
  - Underdose [Unknown]
